FAERS Safety Report 9244920 (Version 2)
Quarter: 2013Q2

REPORT INFORMATION
  Report Type: Spontaneous
  Country: DE (occurrence: DE)
  Receive Date: 20130422
  Receipt Date: 20130603
  Transmission Date: 20140414
  Serious: No
  Sender: FDA-Public Use
  Company Number: DE-JNJFOC-20130408749

PATIENT
  Age: 72 Year
  Sex: Male
  Weight: 102 kg

DRUGS (5)
  1. XARELTO [Suspect]
     Indication: THROMBOSIS PROPHYLAXIS
     Route: 048
     Dates: start: 20130319, end: 20130321
  2. HEPARIN [Concomitant]
     Route: 065
  3. PREDNISOLON [Concomitant]
     Route: 065
  4. BELOC-ZOK [Concomitant]
     Route: 065
  5. TREVILOR [Concomitant]
     Route: 065

REACTIONS (1)
  - Diarrhoea [Recovered/Resolved]
